FAERS Safety Report 11269081 (Version 1)
Quarter: 2015Q3

REPORT INFORMATION
  Report Type: Report from Study
  Country: US (occurrence: US)
  Receive Date: 20150714
  Receipt Date: 20150714
  Transmission Date: 20151125
  Serious: No
  Sender: FDA-Public Use
  Company Number: PHEH2014US022223

PATIENT
  Sex: Male

DRUGS (3)
  1. DIOVAN [Suspect]
     Active Substance: VALSARTAN
     Indication: PRODUCT USED FOR UNKNOWN INDICATION
     Route: 065
  2. TEKTURNA [Suspect]
     Active Substance: ALISKIREN HEMIFUMARATE
     Indication: PRODUCT USED FOR UNKNOWN INDICATION
     Dosage: 150/12.5 MG, QD
     Route: 065
  3. TEKTURNA [Suspect]
     Active Substance: ALISKIREN HEMIFUMARATE
     Dosage: 300/12.5
     Route: 065

REACTIONS (2)
  - Anger [Recovering/Resolving]
  - Weight decreased [Recovering/Resolving]
